FAERS Safety Report 7743190-5 (Version None)
Quarter: 2011Q3

REPORT INFORMATION
  Report Type: 
  Country: None (occurrence: None)
  Receive Date: 20110825
  Receipt Date: 20110819
  Transmission Date: 20111222
  Serious: Yes (Other)
  Sender: FDA-Public Use
  Company Number: DSA_47435_2011

PATIENT
  Sex: Male

DRUGS (1)
  1. XENAZINE [Suspect]
     Indication: DYSKINESIA
     Dosage: (50 MG TID ORAL)
     Route: 048
     Dates: start: 20090115

REACTIONS (2)
  - HYPERSOMNIA [None]
  - MENTAL STATUS CHANGES [None]
